FAERS Safety Report 4841567-9 (Version None)
Quarter: 2005Q4

REPORT INFORMATION
  Report Type: 
  Country: None (occurrence: None)
  Receive Date: 20051130
  Receipt Date: 20050824
  Transmission Date: 20060501
  Serious: No
  Sender: FDA-Public Use
  Company Number: US-GLAXOSMITHKLINE-A0571634A

PATIENT
  Age: 36 Year
  Sex: Female

DRUGS (7)
  1. WELLBUTRIN XL [Suspect]
     Indication: DEPRESSION
     Dosage: 300MG PER DAY
     Route: 048
  2. VITAMINS [Concomitant]
  3. COD LIVER OIL [Concomitant]
  4. FOLIC ACID [Concomitant]
  5. VITAMIN B COMPLEX CAP [Concomitant]
  6. OMEGA 3 FATTY ACIDS [Concomitant]
  7. METABOLIFE [Concomitant]

REACTIONS (2)
  - DRUG ADMINISTRATION ERROR [None]
  - DRUG INEFFECTIVE [None]
